FAERS Safety Report 15906610 (Version 1)
Quarter: 2019Q1

REPORT INFORMATION
  Report Type: Spontaneous
  Country: US (occurrence: US)
  Receive Date: 20190204
  Receipt Date: 20190204
  Transmission Date: 20190417
  Serious: No
  Sender: FDA-Public Use
  Company Number: None

PATIENT
  Age: 40 Year
  Sex: Female
  Weight: 90 kg

DRUGS (1)
  1. TYSABRI [Suspect]
     Active Substance: NATALIZUMAB
     Indication: MULTIPLE SCLEROSIS
     Dosage: ?          OTHER FREQUENCY:ONCE A MONTH;?

REACTIONS (11)
  - Muscle atrophy [None]
  - Epilepsy [None]
  - Dyspepsia [None]
  - Cerebrovascular accident [None]
  - Immune reconstitution inflammatory syndrome [None]
  - Coma [None]
  - Aphasia [None]
  - Vomiting projectile [None]
  - Blindness transient [None]
  - Hallucination [None]
  - Tremor [None]

NARRATIVE: CASE EVENT DATE: 20150115
